FAERS Safety Report 9210795 (Version 1)
Quarter: 2013Q2

REPORT INFORMATION
  Report Type: Spontaneous
  Country: TR (occurrence: TR)
  Receive Date: 20130404
  Receipt Date: 20130404
  Transmission Date: 20140414
  Serious: Yes (Other)
  Sender: FDA-Public Use
  Company Number: PHHY2013TR032744

PATIENT
  Sex: Female

DRUGS (2)
  1. EDICIN [Suspect]
     Indication: PNEUMONIA
     Dosage: 200 MG, Q6H
     Dates: start: 20130301, end: 20130301
  2. CEFTRIAXONE [Concomitant]

REACTIONS (3)
  - Tachycardia [Recovered/Resolved]
  - Vomiting [Recovered/Resolved]
  - Hypopnoea [Recovered/Resolved]
